FAERS Safety Report 11183707 (Version 1)
Quarter: 2015Q2

REPORT INFORMATION
  Report Type: Spontaneous
  Country: US (occurrence: None)
  Receive Date: 20150610
  Receipt Date: 20150610
  Transmission Date: 20150821
  Serious: Yes (Other)
  Sender: FDA-Public Use
  Company Number: None

PATIENT
  Age: 76 Year
  Sex: Male
  Weight: 71.67 kg

DRUGS (25)
  1. LORATIDINE [Concomitant]
     Active Substance: LORATADINE
  2. OXYCODONE [Concomitant]
     Active Substance: OXYCODONE
  3. MAGNESIUM [Concomitant]
     Active Substance: MAGNESIUM
  4. CALCIUM [Concomitant]
     Active Substance: CALCIUM
  5. AVELOX [Suspect]
     Active Substance: MOXIFLOXACIN HYDROCHLORIDE
     Indication: SINUSITIS BACTERIAL
     Route: 048
     Dates: start: 20150429, end: 20150501
  6. PERFORAMIST [Concomitant]
  7. CLONAZEPAM. [Concomitant]
     Active Substance: CLONAZEPAM
  8. VITAMIN D [Concomitant]
     Active Substance: CHOLECALCIFEROL
  9. CHONDROITIN [Concomitant]
     Active Substance: CHONDROITIN
  10. MORPHINE [Concomitant]
     Active Substance: MORPHINE
  11. SAW PALMETTO [Concomitant]
     Active Substance: SAW PALMETTO
  12. GLUCOSAMINE [Concomitant]
     Active Substance: GLUCOSAMINE
  13. DOCUSATE SODIUM. [Concomitant]
     Active Substance: DOCUSATE SODIUM
  14. VENTOLIN [Concomitant]
     Active Substance: ALBUTEROL SULFATE
  15. VIT B [Concomitant]
     Active Substance: VITAMINS
  16. HAIR SKIN NAILS VITAMINS [Concomitant]
  17. PREDNISONE. [Concomitant]
     Active Substance: PREDNISONE
  18. TESTOSTERONE. [Concomitant]
     Active Substance: TESTOSTERONE
  19. FINASTERIDE. [Concomitant]
     Active Substance: FINASTERIDE
  20. SINGULAIR (MONTELUKAST) [Concomitant]
  21. VITAMIN C [Concomitant]
     Active Substance: ASCORBIC ACID
  22. AVELOX [Suspect]
     Active Substance: MOXIFLOXACIN HYDROCHLORIDE
     Indication: SINUSITIS
     Route: 048
     Dates: start: 20150429, end: 20150501
  23. VERAMIST [Concomitant]
  24. VOLTAREN [Concomitant]
     Active Substance: DICLOFENAC SODIUM
  25. ATIVAN [Concomitant]
     Active Substance: LORAZEPAM

REACTIONS (6)
  - Urinary incontinence [None]
  - Hypoaesthesia [None]
  - Faecal incontinence [None]
  - Pain [None]
  - Monoplegia [None]
  - Urinary retention [None]

NARRATIVE: CASE EVENT DATE: 20150501
